FAERS Safety Report 10425136 (Version 1)
Quarter: 2014Q3

REPORT INFORMATION
  Report Type: Spontaneous
  Country: DE (occurrence: DE)
  Receive Date: 20140902
  Receipt Date: 20140902
  Transmission Date: 20150326
  Serious: Yes (Hospitalization)
  Sender: FDA-Public Use
  Company Number: DE-GLAXOSMITHKLINE-B1029049A

PATIENT
  Age: 29 Year
  Sex: Female

DRUGS (2)
  1. PREGABALIN. [Suspect]
     Active Substance: PREGABALIN
     Indication: PRODUCT USED FOR UNKNOWN INDICATION
  2. BUPROPION [Suspect]
     Active Substance: BUPROPION
     Indication: DEPRESSION
     Route: 042

REACTIONS (14)
  - Insomnia [Unknown]
  - Convulsion [Unknown]
  - Drug withdrawal syndrome [Unknown]
  - Feeling drunk [Unknown]
  - Akathisia [Unknown]
  - Incorrect route of drug administration [Unknown]
  - Energy increased [Unknown]
  - Transaminases abnormal [Unknown]
  - Drug abuse [Recovering/Resolving]
  - Affective disorder [Unknown]
  - Agitation [Unknown]
  - Delusion [Unknown]
  - Distractibility [Unknown]
  - Myalgia [Unknown]
